FAERS Safety Report 5698369-3 (Version None)
Quarter: 2008Q2

REPORT INFORMATION
  Report Type: 
  Country: None (occurrence: None)
  Receive Date: 20080403
  Receipt Date: 20080320
  Transmission Date: 20081010
  Serious: Yes (Hospitalization)
  Sender: FDA-Public Use
  Company Number: RENA-1000056

PATIENT

DRUGS (1)
  1. RENAGEL [Suspect]
     Indication: HYPERPHOSPHATAEMIA
     Dates: start: 20080101, end: 20080101

REACTIONS (3)
  - RASH PAPULAR [None]
  - RASH PRURITIC [None]
  - SKIN EXFOLIATION [None]
